FAERS Safety Report 10027457 (Version 1)
Quarter: 2014Q1

REPORT INFORMATION
  Report Type: Spontaneous
  Country: US (occurrence: US)
  Receive Date: 20140321
  Receipt Date: 20140321
  Transmission Date: 20141002
  Serious: No
  Sender: FDA-Public Use
  Company Number: US-PFIZER INC-2014081186

PATIENT
  Age: 51 Year
  Sex: Female
  Weight: 72.6 kg

DRUGS (5)
  1. LYRICA [Suspect]
     Indication: DIABETIC NEUROPATHY
     Dosage: 150 MG, 3X/DAY
     Route: 048
     Dates: start: 200912, end: 20140313
  2. LYRICA [Suspect]
     Indication: FIBROMYALGIA
  3. CLONIDINE [Concomitant]
     Indication: HOT FLUSH
     Dosage: UNK
  4. XANAX [Concomitant]
     Dosage: UNK, 1X/DAY
  5. OXYCODONE [Concomitant]
     Indication: ARTHRITIS
     Dosage: UNK

REACTIONS (1)
  - Pain [Unknown]
